FAERS Safety Report 14812719 (Version 1)
Quarter: 2018Q2

REPORT INFORMATION
  Report Type: Spontaneous
  Country: US (occurrence: US)
  Receive Date: 20180425
  Receipt Date: 20180425
  Transmission Date: 20180711
  Serious: No
  Sender: FDA-Public Use
  Company Number: US-LUPIN PHARMACEUTICALS INC.-2017-04088

PATIENT
  Sex: Female

DRUGS (2)
  1. ZIPRASIDONE HYDROCHLORIDE CAPSULES, 80 MG [Suspect]
     Active Substance: ZIPRASIDONE HYDROCHLORIDE
     Indication: MANIA
     Dosage: 80 MG, QD
     Route: 048
  2. ZIPRASIDONE HYDROCHLORIDE CAPSULES, 80 MG [Suspect]
     Active Substance: ZIPRASIDONE HYDROCHLORIDE
     Indication: DEPRESSION
     Dosage: 80 MG, QD
     Route: 048
     Dates: start: 201603

REACTIONS (1)
  - Dysgeusia [Unknown]
